FAERS Safety Report 9669250 (Version 3)
Quarter: 2014Q1

REPORT INFORMATION
  Report Type: Spontaneous
  Country: GB (occurrence: None)
  Receive Date: 20131101
  Receipt Date: 20140203
  Transmission Date: 20141002
  Serious: Yes (Hospitalization, Other)
  Sender: FDA-Public Use
  Company Number: AUR-APL-2013-08998

PATIENT
  Age: 82 Year
  Sex: Female
  Weight: 56 kg

DRUGS (14)
  1. ALENDRONIC ACID [Suspect]
     Indication: OSTEOPOROSIS
     Dosage: 70MG, 1 IN 1 WK
     Route: 048
     Dates: start: 20090930, end: 20130918
  2. ASPIRIN [Suspect]
     Indication: PROPHYLAXIS
     Dosage: 75MG, 1 IN 1 D
     Route: 048
     Dates: start: 20010626, end: 20130918
  3. ASPIRIN [Suspect]
     Indication: TRANSIENT ISCHAEMIC ATTACK
     Dosage: 75MG, 1 IN 1 D
     Route: 048
     Dates: start: 20010626, end: 20130918
  4. IBUPROFEN [Suspect]
     Indication: OSTEOARTHRITIS
     Dosage: 3 DOSAGE FORMS (1 DOSAGE FORMS, 3 IN 1 D), TOPICAL
     Route: 061
     Dates: start: 20130509
  5. AMLODIPINE (AMLODIPINE) [Concomitant]
  6. ATENOLOL (ATENOLOL) [Concomitant]
  7. BENDROFLUMETHIAZIDE (BENDROFLUMETHIAZIDE) [Concomitant]
  8. CALCICHEW D3 (LEKOVIT CA) [Concomitant]
  9. CO-CODAMOL (PANADEINE CO) [Concomitant]
  10. LAXIDO (ELECTROLYTES NOS W/MACROGOL 3350) [Concomitant]
  11. OPTIVE (OPTIVE) [Concomitant]
  12. PARACETAMOL (PARACETAMOL) [Concomitant]
  13. RAMIPRIL (RAMIPRIL) [Concomitant]
  14. SIMVASTATIN (SIMVASTATIN) [Concomitant]

REACTIONS (3)
  - Gastric ulcer haemorrhage [None]
  - Gastrooesophageal reflux disease [None]
  - Melaena [None]
